FAERS Safety Report 4966944-7 (Version None)
Quarter: 2006Q2

REPORT INFORMATION
  Report Type: 
  Country: None (occurrence: None)
  Receive Date: 20060407
  Receipt Date: 20050419
  Transmission Date: 20061013
  Serious: Yes (Hospitalization)
  Sender: FDA-Public Use
  Company Number: US-MERCK-0504USA03771

PATIENT
  Age: 60 Year
  Sex: Female
  Weight: 98 kg

DRUGS (1)
  1. VIOXX [Suspect]
     Indication: ARTHRITIS
     Route: 048
     Dates: start: 19990101, end: 20040901

REACTIONS (12)
  - ANOREXIA [None]
  - CEREBROVASCULAR ACCIDENT [None]
  - CHEST DISCOMFORT [None]
  - CONCUSSION [None]
  - CONTUSION [None]
  - DIABETES MELLITUS [None]
  - DYSARTHRIA [None]
  - FALL [None]
  - LABYRINTHITIS [None]
  - MYOCARDIAL INFARCTION [None]
  - NECK INJURY [None]
  - TRANSIENT ISCHAEMIC ATTACK [None]
